FAERS Safety Report 12904764 (Version 2)
Quarter: 2016Q4

REPORT INFORMATION
  Report Type: Spontaneous
  Country: BR (occurrence: BR)
  Receive Date: 20161102
  Receipt Date: 20161102
  Transmission Date: 20170207
  Serious: Yes (Other)
  Sender: FDA-Public Use
  Company Number: BR-GLAXOSMITHKLINE-BR2016GSK158421

PATIENT
  Age: 88 Year
  Sex: Male
  Weight: 80 kg

DRUGS (5)
  1. COMBODART [Suspect]
     Active Substance: DUTASTERIDE\TAMSULOSIN
     Indication: PROSTATOMEGALY
     Dosage: 1 DF, QD
     Dates: end: 20161020
  2. DIGOXINE [Concomitant]
     Active Substance: DIGOXIN
     Indication: CARDIAC FAILURE
     Dosage: 0.25 MG, QD
  3. SPIRONOLACTONE. [Concomitant]
     Active Substance: SPIRONOLACTONE
     Indication: CARDIAC FAILURE
     Dosage: 25 MG, QD
  4. NEUTROFER [Concomitant]
     Active Substance: FERROUS BISGLYCINATE
     Indication: PERNICIOUS ANAEMIA
     Dosage: 500 MG, QD
  5. CLONAZEPAN [Concomitant]
     Active Substance: CLONAZEPAM
     Indication: INSOMNIA
     Dosage: 0.5 MG, QD

REACTIONS (10)
  - Haematochezia [Recovered/Resolved]
  - Peripheral swelling [Recovered/Resolved]
  - Gynaecomastia [Recovering/Resolving]
  - Weight fluctuation [Recovering/Resolving]
  - Red blood cells urine [Recovered/Resolved]
  - Pneumonia [Recovered/Resolved]
  - Chromaturia [Recovered/Resolved]
  - Breast pain [Recovered/Resolved]
  - Gastrooesophageal reflux disease [Recovering/Resolving]
  - Product availability issue [Unknown]

NARRATIVE: CASE EVENT DATE: 20161002
